FAERS Safety Report 9017692 (Version 1)
Quarter: 2013Q1

REPORT INFORMATION
  Report Type: Spontaneous
  Country: US (occurrence: US)
  Receive Date: 20130118
  Receipt Date: 20130118
  Transmission Date: 20140127
  Serious: No
  Sender: FDA-Public Use
  Company Number: US-009507513-1301USA004119

PATIENT
  Age: 50 Year
  Sex: Male

DRUGS (7)
  1. SYLATRON [Suspect]
     Indication: MALIGNANT MELANOMA
     Dosage: 492 MICROGRAM, ONCE
     Route: 058
     Dates: start: 20121206, end: 20121206
  2. SYLATRON [Suspect]
     Dosage: 492 MICROGRAM, ONCE
     Route: 058
     Dates: start: 20121214, end: 20121214
  3. SYLATRON [Suspect]
     Dosage: 492 MICROGRAM, ONCE
     Route: 058
     Dates: start: 20121228, end: 20121228
  4. LANTUS [Concomitant]
  5. GLIPIZIDE [Concomitant]
  6. JANUMET [Concomitant]
  7. LOVASTATIN [Concomitant]

REACTIONS (1)
  - Neutrophil count decreased [Unknown]
